FAERS Safety Report 5685365-5 (Version None)
Quarter: 2008Q1

REPORT INFORMATION
  Report Type: 
  Country: None (occurrence: None)
  Receive Date: 20080328
  Receipt Date: 20080317
  Transmission Date: 20080703
  Serious: Yes (Other)
  Sender: FDA-Public Use
  Company Number: US-PFIZER INC-2008025275

PATIENT
  Sex: Female
  Weight: 81 kg

DRUGS (6)
  1. LYRICA [Suspect]
     Indication: FIBROMYALGIA
     Dates: start: 20060101, end: 20060101
  2. METADATE CD [Concomitant]
  3. DIURETICS [Concomitant]
  4. TRAZODONE HCL [Concomitant]
  5. LAMICTAL [Concomitant]
  6. ALL OTHER THERAPEUTIC PRODUCTS [Concomitant]

REACTIONS (1)
  - MUTISM [None]
